FAERS Safety Report 13284200 (Version 2)
Quarter: 2017Q1

REPORT INFORMATION
  Report Type: Spontaneous
  Country: US (occurrence: US)
  Receive Date: 20170301
  Receipt Date: 20170303
  Transmission Date: 20170428
  Serious: Yes (Other)
  Sender: FDA-Public Use
  Company Number: US-BEH-200610173

PATIENT
  Age: 31 Year
  Sex: Female
  Weight: 120.2 kg

DRUGS (1)
  1. RHOPHYLAC [Suspect]
     Active Substance: HUMAN RHO(D) IMMUNE GLOBULIN
     Indication: PRODUCT USED FOR UNKNOWN INDICATION
     Route: 030
     Dates: start: 20060216, end: 20060216

REACTIONS (1)
  - Rhesus antibodies positive [Unknown]

NARRATIVE: CASE EVENT DATE: 20060425
